FAERS Safety Report 8586976-X (Version None)
Quarter: 2012Q3

REPORT INFORMATION
  Report Type: 
  Country: None (occurrence: None)
  Receive Date: 20120810
  Receipt Date: 20120803
  Transmission Date: 20120928
  Serious: Yes (Other)
  Sender: FDA-Public Use
  Company Number: JP-VERTEX PHARMACEUTICALS INC.-AE-2012-011835

PATIENT
  Age: 56 Year
  Sex: Male

DRUGS (8)
  1. TELAVIC (TELAPREVIR) [Suspect]
     Indication: HEPATITIS C
     Route: 048
     Dates: start: 20120611
  2. RIBAVIRIN [Concomitant]
     Route: 048
     Dates: start: 20120307
  3. PEGINTERFERON ALFA-2B [Concomitant]
     Indication: HEPATITIS C
     Route: 058
     Dates: start: 20120611, end: 20120625
  4. RIBAVIRIN [Concomitant]
     Indication: HEPATITIS C
     Route: 048
     Dates: start: 20120611, end: 20120702
  5. PEGINTERFERON ALFA-2B [Concomitant]
     Route: 058
     Dates: start: 20120703, end: 20120717
  6. FAMOTIDINE [Concomitant]
     Route: 048
     Dates: start: 20120611
  7. ACETAMINOPHEN [Concomitant]
     Route: 048
     Dates: start: 20120611
  8. PEGINTERFERON ALFA-2B [Concomitant]
     Route: 058
     Dates: start: 20120724

REACTIONS (2)
  - NEUTROPHIL COUNT DECREASED [None]
  - WHITE BLOOD CELL COUNT DECREASED [None]
